FAERS Safety Report 14248730 (Version 2)
Quarter: 2020Q1

REPORT INFORMATION
  Report Type: Report from Study
  Country: US (occurrence: US)
  Receive Date: 20171204
  Receipt Date: 20200311
  Transmission Date: 20200409
  Serious: Yes (Death, Hospitalization)
  Sender: FDA-Public Use
  Company Number: US-PFIZER INC-2017516607

PATIENT
  Age: 63 Year
  Sex: Female
  Weight: 69.1 kg

DRUGS (11)
  1. METHYLPREDNISOLONE SODIUM SUCCINATE. [Suspect]
     Active Substance: METHYLPREDNISOLONE SODIUM SUCCINATE
     Dosage: 70 MG, 2X/DAY
     Route: 042
     Dates: start: 20170901, end: 20170907
  2. RUXOLITINIB [Suspect]
     Active Substance: RUXOLITINIB
     Indication: GRAFT VERSUS HOST DISEASE
     Dosage: 5 MG, 2X/DAY
     Route: 048
     Dates: start: 20170805, end: 20170808
  3. RUXOLITINIB [Suspect]
     Active Substance: RUXOLITINIB
     Dosage: 10 MG, 2X/DAY
     Route: 048
     Dates: start: 20170809, end: 20170921
  4. METHYLPREDNISOLONE SODIUM SUCCINATE. [Suspect]
     Active Substance: METHYLPREDNISOLONE SODIUM SUCCINATE
     Dosage: 100 MG, 2X/DAY
     Route: 042
     Dates: start: 20170810, end: 20170817
  5. METHYLPREDNISOLONE SODIUM SUCCINATE. [Suspect]
     Active Substance: METHYLPREDNISOLONE SODIUM SUCCINATE
     Dosage: 110 MG, 2X/DAY
     Route: 042
     Dates: start: 20170809, end: 20170809
  6. METHYLPREDNISOLONE SODIUM SUCCINATE. [Suspect]
     Active Substance: METHYLPREDNISOLONE SODIUM SUCCINATE
     Dosage: 60 MG, 2X/DAY
     Route: 042
     Dates: start: 20170908, end: 20170914
  7. METHYLPREDNISOLONE SODIUM SUCCINATE. [Suspect]
     Active Substance: METHYLPREDNISOLONE SODIUM SUCCINATE
     Dosage: 50 MG, 2X/DAY
     Route: 042
     Dates: start: 20170915, end: 20170928
  8. METHYLPREDNISOLONE SODIUM SUCCINATE. [Suspect]
     Active Substance: METHYLPREDNISOLONE SODIUM SUCCINATE
     Dosage: 80 MG, 2X/DAY
     Route: 042
     Dates: start: 20170824, end: 20170831
  9. METHYLPREDNISOLONE SODIUM SUCCINATE. [Suspect]
     Active Substance: METHYLPREDNISOLONE SODIUM SUCCINATE
     Dosage: 40 MG, 2X/DAY
     Route: 042
     Dates: start: 20170929, end: 20171004
  10. METHYLPREDNISOLONE SODIUM SUCCINATE. [Suspect]
     Active Substance: METHYLPREDNISOLONE SODIUM SUCCINATE
     Indication: GRAFT VERSUS HOST DISEASE
     Dosage: 120 MG, 2X/DAY
     Route: 042
     Dates: start: 20170805, end: 20170808
  11. METHYLPREDNISOLONE SODIUM SUCCINATE. [Suspect]
     Active Substance: METHYLPREDNISOLONE SODIUM SUCCINATE
     Dosage: 90 MG, 2X/DAY
     Route: 042
     Dates: start: 20170818, end: 20170823

REACTIONS (1)
  - Disease progression [Fatal]

NARRATIVE: CASE EVENT DATE: 20170921
